FAERS Safety Report 6106330-X (Version None)
Quarter: 2009Q1

REPORT INFORMATION
  Report Type: 
  Country: None (occurrence: None)
  Receive Date: 20090306
  Receipt Date: 20090227
  Transmission Date: 20090719
  Serious: Yes (Death)
  Sender: FDA-Public Use
  Company Number: PHHY2009ES07365

PATIENT

DRUGS (4)
  1. EUCREAS [Suspect]
     Indication: DIABETES MELLITUS
  2. ENALAPRIL MALEATE [Concomitant]
  3. SEGURIL [Concomitant]
  4. AINEX [Concomitant]

REACTIONS (1)
  - SUDDEN DEATH [None]
